FAERS Safety Report 8375017-5 (Version None)
Quarter: 2012Q2

REPORT INFORMATION
  Report Type: 
  Country: None (occurrence: None)
  Receive Date: 20120521
  Receipt Date: 20120515
  Transmission Date: 20120825
  Serious: Yes (Other)
  Sender: FDA-Public Use
  Company Number: US-BAYER-201041702NA

PATIENT
  Age: 53 Year
  Sex: Male
  Weight: 132 kg

DRUGS (27)
  1. LIPITOR [Concomitant]
     Dosage: UNK UNK, QD
  2. COUMADIN [Concomitant]
  3. FENTANYL [Concomitant]
     Dosage: 5 CC
     Route: 042
     Dates: start: 20050217
  4. PHENYLEPHRINE HCL [Concomitant]
  5. EPINEPHRINE [Concomitant]
  6. PHOSLO [Concomitant]
     Dosage: 2 TABLETS 3 TIMES A DAY
  7. TRASYLOL [Suspect]
     Indication: MITRAL VALVE REPAIR
  8. PROTONIX [Concomitant]
     Dosage: UNK UNK, QD
  9. PROTAMINE SULFATE [Concomitant]
  10. SEREVENT [Concomitant]
     Route: 045
  11. ANCEF [Concomitant]
     Indication: PROPHYLAXIS
     Dosage: 2 G, UNK
     Route: 042
     Dates: start: 20050216
  12. ANCEF [Concomitant]
     Dosage: 1 G, UNK
     Route: 042
     Dates: start: 20050217
  13. HEPARIN [Concomitant]
     Dosage: 37,000 UNITS
     Route: 042
     Dates: start: 20050217
  14. SODIUM BICARBONATE [Concomitant]
  15. SPIRONOLACTONE [Concomitant]
     Dosage: 12.5 MG, ONCE
  16. RED BLOOD CELLS [Concomitant]
     Dosage: 4 U, UNK
     Route: 042
     Dates: start: 20050217
  17. TRASYLOL [Suspect]
     Indication: CORONARY ARTERY BYPASS
     Dosage: 200 CC BOLUS FOLLOWED WITH INFUSION AT 50CC/HR
     Route: 042
     Dates: start: 20050217, end: 20050217
  18. ANECTINE [Concomitant]
     Dosage: UNK
     Dates: start: 20050217
  19. ASPIRIN [Concomitant]
     Dosage: UNK UNK, QD
  20. METOPROLOL [Concomitant]
     Dosage: 25 MG, BID
     Route: 048
  21. ACETAMINOPHEN [Concomitant]
  22. TRASYLOL [Suspect]
     Indication: ATRIAL SEPTAL DEFECT REPAIR
  23. DOBUTAMINE HCL [Concomitant]
     Dosage: 11 MCG/KG/MIN
     Route: 042
     Dates: start: 20050217
  24. NIMBEX [Concomitant]
  25. POTASSIUM CHLORIDE [Concomitant]
  26. AMIODARONE HCL [Concomitant]
     Dosage: 200 MG, BID
  27. VERSED [Concomitant]
     Dosage: UNK
     Dates: start: 20050217

REACTIONS (10)
  - RENAL IMPAIRMENT [None]
  - FEAR [None]
  - PAIN [None]
  - INJURY [None]
  - EMOTIONAL DISTRESS [None]
  - ANXIETY [None]
  - STRESS [None]
  - UNEVALUABLE EVENT [None]
  - RENAL FAILURE [None]
  - RENAL INJURY [None]
